FAERS Safety Report 18002308 (Version 3)
Quarter: 2020Q3

REPORT INFORMATION
  Report Type: Report from Study
  Country: None (occurrence: US)
  Receive Date: 20200710
  Receipt Date: 20200813
  Transmission Date: 20201103
  Serious: Yes (Hospitalization, Other)
  Sender: FDA-Public Use
  Company Number: US-ABBVIE-19K-163-3154838-00

PATIENT
  Age: 73 Year
  Sex: Male

DRUGS (9)
  1. IMBRUVICA [Suspect]
     Active Substance: IBRUTINIB
     Route: 048
  2. IMBRUVICA [Suspect]
     Active Substance: IBRUTINIB
     Route: 048
  3. IMBRUVICA [Suspect]
     Active Substance: IBRUTINIB
     Route: 048
     Dates: start: 20190715, end: 20200617
  4. IMBRUVICA [Suspect]
     Active Substance: IBRUTINIB
     Indication: LYMPHOCYTIC LYMPHOMA
     Route: 048
     Dates: start: 20190822
  5. IMBRUVICA [Suspect]
     Active Substance: IBRUTINIB
     Indication: CHRONIC LYMPHOCYTIC LEUKAEMIA
     Route: 048
     Dates: start: 2019
  6. IMBRUVICA [Suspect]
     Active Substance: IBRUTINIB
     Route: 048
     Dates: start: 201907, end: 20200725
  7. CARAFATE [Concomitant]
     Active Substance: SUCRALFATE
     Indication: PRODUCT USED FOR UNKNOWN INDICATION
  8. PROTINEX [Concomitant]
     Indication: PRODUCT USED FOR UNKNOWN INDICATION
  9. IMBRUVICA [Suspect]
     Active Substance: IBRUTINIB
     Indication: CHRONIC LYMPHOCYTIC LEUKAEMIA
     Route: 048
     Dates: start: 20190725

REACTIONS (20)
  - Renal failure [Unknown]
  - Memory impairment [Unknown]
  - Confusional state [Unknown]
  - Gastritis [Recovering/Resolving]
  - Acute kidney injury [Unknown]
  - White blood cell count increased [Recovering/Resolving]
  - Fall [Unknown]
  - Decreased appetite [Unknown]
  - Blindness [Recovering/Resolving]
  - Depression [Recovered/Resolved]
  - Dyspepsia [Unknown]
  - Hospitalisation [Unknown]
  - Product dose omission issue [Unknown]
  - Eructation [Unknown]
  - Muscle disorder [Unknown]
  - Feeling cold [Unknown]
  - Fatigue [Unknown]
  - Dehydration [Unknown]
  - Weight decreased [Unknown]
  - Nausea [Recovering/Resolving]

NARRATIVE: CASE EVENT DATE: 20200617
